FAERS Safety Report 10443550 (Version 1)
Quarter: 2014Q3

REPORT INFORMATION
  Report Type: Report from Study
  Country: US (occurrence: US)
  Receive Date: 20140910
  Receipt Date: 20140910
  Transmission Date: 20150326
  Serious: Yes (Hospitalization)
  Sender: FDA-Public Use
  Company Number: US-BIOGENIDEC-2014BI088975

PATIENT
  Age: 53 Year
  Sex: Female

DRUGS (1)
  1. TECFIDERA [Suspect]
     Active Substance: DIMETHYL FUMARATE
     Indication: MULTIPLE SCLEROSIS
     Route: 048

REACTIONS (10)
  - Headache [Unknown]
  - Cerebrospinal fluid leakage [Unknown]
  - Bone neoplasm [Not Recovered/Not Resolved]
  - Procedural complication [Unknown]
  - Abasia [Unknown]
  - Abdominal discomfort [Recovered/Resolved]
  - Intervertebral disc displacement [Unknown]
  - Hypoaesthesia [Recovered/Resolved]
  - Nausea [Recovered/Resolved]
  - Throat irritation [Not Recovered/Not Resolved]

NARRATIVE: CASE EVENT DATE: 2013
